FAERS Safety Report 8049964-8 (Version None)
Quarter: 2012Q1

REPORT INFORMATION
  Report Type: 
  Country: None (occurrence: None)
  Receive Date: 20120117
  Receipt Date: 20120111
  Transmission Date: 20120608
  Serious: Yes (Hospitalization, Disabling, Other)
  Sender: FDA-Public Use
  Company Number: US-PFIZER INC-2011281768

PATIENT
  Sex: Male

DRUGS (2)
  1. REQUIP [Concomitant]
     Indication: MUSCLE SPASMS
     Dosage: UNK
     Dates: start: 20060501
  2. CHANTIX [Suspect]
     Indication: SMOKING CESSATION THERAPY
     Dosage: 1 MG, UNK
     Dates: start: 20070201, end: 20070701

REACTIONS (8)
  - DEPRESSION [None]
  - ROAD TRAFFIC ACCIDENT [None]
  - BACK PAIN [None]
  - LOSS OF CONSCIOUSNESS [None]
  - SENSORY LOSS [None]
  - MENTAL DISORDER [None]
  - EMOTIONAL DISTRESS [None]
  - CERVICAL VERTEBRAL FRACTURE [None]
